FAERS Safety Report 8810130 (Version 2)
Quarter: 2012Q4

REPORT INFORMATION
  Report Type: 
  Country: FR (occurrence: FR)
  Receive Date: 20120926
  Receipt Date: 20121226
  Transmission Date: 20130627
  Serious: Yes (Other)
  Sender: FDA-Public Use
  Company Number: FR-ROCHE-1135007

PATIENT
  Sex: Female

DRUGS (4)
  1. RIVOTRIL [Suspect]
     Indication: EPILEPSY
     Route: 048
     Dates: start: 1975
  2. KEPPRA [Suspect]
     Indication: EPILEPSY
     Dosage: Dose form = Tablets. Also reported as 2mg once daily
     Route: 048
     Dates: start: 2005
  3. KEPPRA [Suspect]
     Route: 065
  4. LAMICTAL [Suspect]
     Indication: EPILEPSY
     Dosage: Dose form = Tablets. Daily dose 400mg
     Route: 048
     Dates: start: 2000

REACTIONS (1)
  - Respiratory tract infection [Recovered/Resolved]
